FAERS Safety Report 8802701 (Version 2)
Quarter: 2012Q4

REPORT INFORMATION
  Report Type: 
  Country: US (occurrence: US)
  Receive Date: 20120921
  Receipt Date: 20121102
  Transmission Date: 20130627
  Serious: Yes (Hospitalization, Other)
  Sender: FDA-Public Use
  Company Number: US-BAXTER-2012BAX016996

PATIENT
  Age: 82 Year
  Sex: Female

DRUGS (1)
  1. DIANEAL LOW CALCIUM (ULTRABAG) [Suspect]
     Indication: AUTOMATED PERITONEAL DIALYSIS
     Route: 033

REACTIONS (6)
  - Pyrexia [Unknown]
  - Peritonitis bacterial [Recovered/Resolved]
  - Peritoneal dialysis complication [Recovered/Resolved]
  - Procedural complication [Unknown]
  - Fluid retention [Unknown]
  - Fluid overload [Unknown]
